FAERS Safety Report 9298246 (Version 1)
Quarter: 2013Q2

REPORT INFORMATION
  Report Type: Spontaneous
  Country: US (occurrence: None)
  Receive Date: 20130515
  Receipt Date: 20130515
  Transmission Date: 20140414
  Serious: Yes (Hospitalization)
  Sender: FDA-Public Use
  Company Number: IMP_06690_2013

PATIENT
  Age: 14 Year
  Sex: Male

DRUGS (4)
  1. MINOCYCLINE [Suspect]
     Indication: ACNE
  2. ADDERALL [Concomitant]
  3. QUETIAPINE [Concomitant]
  4. LITHIUM [Concomitant]

REACTIONS (3)
  - Drug reaction with eosinophilia and systemic symptoms [None]
  - Hyponatraemia [None]
  - Autoimmune thyroiditis [None]
